FAERS Safety Report 7849533-6 (Version None)
Quarter: 2011Q4

REPORT INFORMATION
  Report Type: 
  Country: None (occurrence: None)
  Receive Date: 20111024
  Receipt Date: 20111012
  Transmission Date: 20120403
  Serious: Yes (Hospitalization, Disabling, Other)
  Sender: FDA-Public Use
  Company Number: USA/USA/11/0021633

PATIENT
  Sex: Female

DRUGS (12)
  1. PEPCID [Suspect]
     Dates: start: 20090701
  2. ALUDROX SA TAB [Suspect]
  3. SPIRONOLACTONE [Suspect]
     Dosage: 25 MG,
  4. PLAVIX [Concomitant]
  5. OMEPRAZOLE [Suspect]
     Dates: start: 20090101
  6. ASPIRIN [Concomitant]
  7. AMOXICILLIN [Suspect]
     Dosage: 1000 MG,
  8. PRILOSEC [Suspect]
     Dates: start: 20090901, end: 20090901
  9. LISINOPRIL [Suspect]
     Indication: HYPERTENSION
     Dosage: 10 MG, 2 IN 1 D,
  10. FUROSEMIDE [Suspect]
     Dosage: 40 MG,
  11. DOCUSATE (DOCUSATE) [Concomitant]
  12. LOVASTATIN [Concomitant]

REACTIONS (9)
  - ABDOMINAL PAIN UPPER [None]
  - DECREASED APPETITE [None]
  - DISBACTERIOSIS [None]
  - HYPOPHAGIA [None]
  - MALAISE [None]
  - ELECTROLYTE IMBALANCE [None]
  - ILL-DEFINED DISORDER [None]
  - DYSPEPSIA [None]
  - DEHYDRATION [None]
